FAERS Safety Report 5838503-5 (Version None)
Quarter: 2008Q3

REPORT INFORMATION
  Report Type: 
  Country: None (occurrence: None)
  Receive Date: 20080808
  Receipt Date: 20080730
  Transmission Date: 20090109
  Serious: Yes (Hospitalization, Other)
  Sender: FDA-Public Use
  Company Number: BE-JNJFOC-20080702436

PATIENT
  Age: 61 Year
  Sex: Female

DRUGS (10)
  1. REMICADE [Suspect]
     Route: 042
  2. REMICADE [Suspect]
     Indication: RHEUMATOID ARTHRITIS
     Route: 042
  3. METHOTREXATE [Concomitant]
  4. FOLIC ACID [Concomitant]
  5. D-CURE [Concomitant]
  6. CALCIUM [Concomitant]
  7. ACTONEL [Concomitant]
  8. ZOLPIDEM [Concomitant]
  9. SPASMOMEN [Concomitant]
  10. ZYRTEC [Concomitant]

REACTIONS (1)
  - OVARIAN EPITHELIAL CANCER [None]
